FAERS Safety Report 21998722 (Version 3)
Quarter: 2023Q1

REPORT INFORMATION
  Report Type: Report from Study
  Country: CA (occurrence: CA)
  Receive Date: 20230216
  Receipt Date: 20230226
  Transmission Date: 20230418
  Serious: Yes (Other)
  Sender: FDA-Public Use
  Company Number: CA-JNJFOC-20221245019

PATIENT
  Age: 41 Year
  Sex: Female

DRUGS (1)
  1. REMICADE [Suspect]
     Active Substance: INFLIXIMAB
     Indication: Colitis ulcerative
     Route: 042

REACTIONS (5)
  - Surgery [Unknown]
  - Uterine cancer [Unknown]
  - Cervix carcinoma [Unknown]
  - Colitis ulcerative [Unknown]
  - Lung disorder [Unknown]

NARRATIVE: CASE EVENT DATE: 20221209
